FAERS Safety Report 5802875-8 (Version None)
Quarter: 2008Q3

REPORT INFORMATION
  Report Type: 
  Country: None (occurrence: None)
  Receive Date: 20080708
  Receipt Date: 20080624
  Transmission Date: 20090109
  Serious: Yes (Other)
  Sender: FDA-Public Use
  Company Number: US-BAYER-200812599BCC

PATIENT
  Sex: Female
  Weight: 73 kg

DRUGS (9)
  1. ASPIRIN [Suspect]
     Indication: ARTHRALGIA
     Route: 048
  2. ONE-A-DAY ESSENTIAL VITAMINS [Suspect]
     Indication: VITAMIN SUPPLEMENTATION
     Dosage: TOTAL DAILY DOSE: 1 DF  UNIT DOSE: 1 DF
     Route: 048
  3. ONE-A-DAY WOMEN'S VITAMIN [Suspect]
     Indication: VITAMIN SUPPLEMENTATION
     Dosage: TOTAL DAILY DOSE: 1 DF  UNIT DOSE: 1 DF
     Route: 048
  4. PRESERVISION [Concomitant]
  5. ZOCOR [Concomitant]
  6. VASOTEC [Concomitant]
  7. PEPCID [Concomitant]
  8. TYLENOL [Concomitant]
  9. DARVOCET [Concomitant]

REACTIONS (2)
  - MACULAR DEGENERATION [None]
  - OESOPHAGEAL HAEMORRHAGE [None]
